FAERS Safety Report 16711425 (Version 2)
Quarter: 2019Q3

REPORT INFORMATION
  Report Type: Spontaneous
  Country: US (occurrence: US)
  Receive Date: 20190816
  Receipt Date: 20190919
  Transmission Date: 20191004
  Serious: Yes (Death, Other)
  Sender: FDA-Public Use
  Company Number: US-UNITED THERAPEUTICS-UNT-2019-013677

PATIENT
  Age: 75 Year
  Sex: Female

DRUGS (2)
  1. REMODULIN [Suspect]
     Active Substance: TREPROSTINIL
     Indication: PULMONARY ARTERIAL HYPERTENSION
     Dosage: 0.0222 ?G/KG, CONTINUING
     Route: 058
     Dates: start: 20190807
  2. REMODULIN [Suspect]
     Active Substance: TREPROSTINIL
     Dosage: 0.0022 ?G/KG, CONTINUING
     Route: 058
     Dates: start: 20190811, end: 20190812

REACTIONS (4)
  - General physical health deterioration [Unknown]
  - Unresponsive to stimuli [Unknown]
  - Oxygen saturation decreased [Unknown]
  - Death [Fatal]

NARRATIVE: CASE EVENT DATE: 20190812
